FAERS Safety Report 5805473-5 (Version None)
Quarter: 2008Q3

REPORT INFORMATION
  Report Type: 
  Country: None (occurrence: None)
  Receive Date: 20080710
  Receipt Date: 20080701
  Transmission Date: 20090109
  Serious: Yes (Death, Other)
  Sender: FDA-Public Use
  Company Number: US-WYE-H04336708

PATIENT
  Sex: Female

DRUGS (7)
  1. EFFEXOR XR [Suspect]
     Indication: BIPOLAR DISORDER
     Dosage: 300 MG IN THE AM AND 150 MG AT NOON
     Route: 048
  2. EFFEXOR XR [Suspect]
     Indication: DEPRESSION
  3. AMBIEN [Concomitant]
  4. TRAZODONE HCL [Concomitant]
  5. WELLBUTRIN [Concomitant]
     Dosage: 300 MG EVERY AM AND NOON
  6. INSULIN [Concomitant]
     Indication: TYPE 1 DIABETES MELLITUS
     Dosage: UNKNOWN
  7. NEURONTIN [Concomitant]

REACTIONS (2)
  - DEATH [None]
  - DRUG LEVEL INCREASED [None]
